FAERS Safety Report 6781461-X (Version None)
Quarter: 2010Q2

REPORT INFORMATION
  Report Type: 
  Country: None (occurrence: None)
  Receive Date: 20100621
  Receipt Date: 20100612
  Transmission Date: 20101027
  Serious: Yes (Hospitalization)
  Sender: FDA-Public Use
  Company Number: US-ROCHE-709233

PATIENT
  Age: 53 Year
  Sex: Male

DRUGS (1)
  1. BEVACIZUMAB [Suspect]
     Route: 042

REACTIONS (2)
  - PNEUMONIA [None]
  - PNEUMONIA ASPIRATION [None]
